FAERS Safety Report 7672848-1 (Version None)
Quarter: 2011Q3

REPORT INFORMATION
  Report Type: 
  Country: None (occurrence: None)
  Receive Date: 20110809
  Receipt Date: 20110807
  Transmission Date: 20111222
  Serious: Yes (Other)
  Sender: FDA-Public Use
  Company Number: US-PFIZER INC-2011180605

PATIENT
  Sex: Female
  Weight: 79.365 kg

DRUGS (11)
  1. LORAZEPAM [Concomitant]
     Indication: ANXIETY
     Dosage: 0.5 MG, 4X/DAY
  2. SERTRALINE HYDROCHLORIDE [Suspect]
     Indication: POST-TRAUMATIC STRESS DISORDER
     Dosage: 50 MG, 1X/DAY
     Route: 048
     Dates: start: 20070101
  3. ACETYLSALICYLIC ACID [Concomitant]
     Indication: CEREBROVASCULAR ACCIDENT
  4. BENZTROPINE MESYLATE [Concomitant]
     Dosage: 1 MG, 1X/DAY
  5. SIMVASTATIN [Concomitant]
     Indication: BLOOD CHOLESTEROL INCREASED
     Dosage: 20 MG, 1X/DAY
  6. LISINOPRIL [Concomitant]
     Indication: HYPERTENSION
     Dosage: 20 MG, 1X/DAY
  7. SINGULAIR [Concomitant]
     Indication: HYPERSENSITIVITY
     Dosage: 10 MG, 1X/DAY
  8. IBUPROFEN [Concomitant]
     Indication: ARTHRITIS
     Dosage: 800 MG, 3X/DAY
  9. OMEPRAZOLE [Concomitant]
     Indication: GASTROOESOPHAGEAL REFLUX DISEASE
     Dosage: 20 MG, 1X/DAY
  10. ACETYLSALICYLIC ACID [Concomitant]
     Indication: MYOCARDIAL INFARCTION
     Dosage: UNK
  11. IBUPROFEN [Concomitant]
     Indication: HEADACHE

REACTIONS (6)
  - CEREBROVASCULAR ACCIDENT [None]
  - AMNESIA [None]
  - FIBROMYALGIA [None]
  - DYSPNOEA [None]
  - ALOPECIA [None]
  - ILL-DEFINED DISORDER [None]
